FAERS Safety Report 18182649 (Version 4)
Quarter: 2021Q4

REPORT INFORMATION
  Report Type: Spontaneous
  Country: BR (occurrence: BR)
  Receive Date: 20200822
  Receipt Date: 20211020
  Transmission Date: 20220303
  Serious: Yes (Other)
  Sender: FDA-Public Use
  Company Number: BR-PFIZER INC-2020318714

PATIENT
  Age: 38 Year
  Sex: Female
  Weight: 65 kg

DRUGS (5)
  1. ENBREL [Suspect]
     Active Substance: ETANERCEPT
     Indication: Rheumatoid arthritis
     Dosage: 50 MG, 1X PER WEEK
     Route: 065
     Dates: start: 201601, end: 20200626
  2. ENBREL [Suspect]
     Active Substance: ETANERCEPT
     Indication: Psoriasis
     Dosage: UNK
     Route: 065
  3. DULOXETINE [Concomitant]
     Active Substance: DULOXETINE
     Indication: Antidepressant therapy
     Dosage: UNK
     Dates: start: 201712, end: 20200804
  4. PREGABALIN [Concomitant]
     Active Substance: PREGABALIN
     Indication: Antidepressant therapy
     Dosage: UNK
     Dates: start: 201712, end: 20200804
  5. LAMOTRIGINE [Concomitant]
     Active Substance: LAMOTRIGINE
     Indication: Bipolar disorder
     Dosage: UNK
     Dates: start: 201712, end: 20200804

REACTIONS (5)
  - Bone pain [Recovered/Resolved]
  - Maternal exposure during pregnancy [Unknown]
  - Pain [Not Recovered/Not Resolved]
  - Sensitivity to weather change [Not Recovered/Not Resolved]
  - COVID-19 [Recovered/Resolved]

NARRATIVE: CASE EVENT DATE: 20200101
